FAERS Safety Report 14130173 (Version 1)
Quarter: 2017Q4

REPORT INFORMATION
  Report Type: Report from Study
  Country: US (occurrence: US)
  Receive Date: 20171026
  Receipt Date: 20171026
  Transmission Date: 20180321
  Serious: Yes (Other)
  Sender: FDA-Public Use
  Company Number: US-ARIAD PHARMACEUTICALS, INC-2017US008608

PATIENT
  Sex: Female

DRUGS (3)
  1. ICLUSIG [Suspect]
     Active Substance: PONATINIB
     Indication: CHRONIC MYELOID LEUKAEMIA
     Dosage: 15 MG, QD
     Route: 048
     Dates: start: 201402
  2. ICLUSIG [Suspect]
     Active Substance: PONATINIB
     Dosage: 30 MG, QD
     Route: 048
  3. ICLUSIG [Suspect]
     Active Substance: PONATINIB
     Dosage: 30 MG, QD
     Route: 048

REACTIONS (12)
  - Weight increased [Unknown]
  - Acne [Unknown]
  - Ulcer haemorrhage [Unknown]
  - Stem cell transplant [Unknown]
  - Obesity [Unknown]
  - Hypertension [Unknown]
  - Glaucoma [Unknown]
  - Alopecia [Unknown]
  - Dermatitis exfoliative [Unknown]
  - White blood cell count increased [Unknown]
  - Angiopathy [Unknown]
  - Platelet count increased [Unknown]
